FAERS Safety Report 9713586 (Version 1)
Quarter: 2013Q4

REPORT INFORMATION
  Report Type: Report from Study
  Country: CA (occurrence: CA)
  Receive Date: 20131126
  Receipt Date: 20131126
  Transmission Date: 20140711
  Serious: Yes (Other)
  Sender: FDA-Public Use
  Company Number: PHHY2013CA136549

PATIENT
  Sex: Female

DRUGS (6)
  1. VOLTAREN [Suspect]
     Dosage: UNK UKN, UNK
  2. ATROVENT [Concomitant]
     Dosage: UNK UKN, UNK
  3. CLOTRIMADERM [Concomitant]
     Dosage: UNK UKN, UNK
  4. SALBUTAMOL [Concomitant]
     Dosage: UNK UKN, UNK
  5. MEDROL [Concomitant]
     Dosage: UNK UKN, UNK
  6. LOMOTIL                            /00034001/ [Concomitant]
     Dosage: UNK UKN, UNK

REACTIONS (2)
  - Cataract [Unknown]
  - Visual impairment [Unknown]
